FAERS Safety Report 10378454 (Version 4)
Quarter: 2014Q4

REPORT INFORMATION
  Report Type: Spontaneous
  Country: US (occurrence: None)
  Receive Date: 20140807
  Receipt Date: 20141124
  Transmission Date: 20150528
  Serious: Yes (Hospitalization, Other)
  Sender: FDA-Public Use
  Company Number: 2014-US-009523

PATIENT
  Age: 76 Year
  Sex: Male

DRUGS (1)
  1. XYREM [Suspect]
     Active Substance: SODIUM OXYBATE
     Indication: NARCOLEPSY
     Route: 048
     Dates: start: 201104, end: 2014

REACTIONS (8)
  - Contusion [None]
  - Seizure like phenomena [None]
  - Urinary retention [None]
  - Fluid retention [None]
  - Fall [None]
  - Urinary tract infection [None]
  - Cerebral haemorrhage [None]
  - Skull fracture [None]

NARRATIVE: CASE EVENT DATE: 2014
